FAERS Safety Report 12074415 (Version 3)
Quarter: 2016Q1

REPORT INFORMATION
  Report Type: Spontaneous
  Country: US (occurrence: US)
  Receive Date: 20160212
  Receipt Date: 20160222
  Transmission Date: 20160526
  Serious: Yes (Hospitalization, Other)
  Sender: FDA-Public Use
  Company Number: US-PFIZER INC-2016082078

PATIENT
  Age: 60 Year
  Sex: Female
  Weight: 78.93 kg

DRUGS (9)
  1. PRISTIQ EXTENDED RELEASE [Suspect]
     Active Substance: DESVENLAFAXINE SUCCINATE
     Indication: CRYING
  2. METFORMIN [Concomitant]
     Active Substance: METFORMIN HYDROCHLORIDE
     Indication: DIABETES MELLITUS
     Dosage: UNK
  3. LAMICTAL [Concomitant]
     Active Substance: LAMOTRIGINE
     Dosage: UNK
  4. CRESTOR [Concomitant]
     Active Substance: ROSUVASTATIN CALCIUM
     Indication: BLOOD CHOLESTEROL INCREASED
     Dosage: UNK
  5. CRESTOR [Concomitant]
     Active Substance: ROSUVASTATIN CALCIUM
     Indication: BLOOD TRIGLYCERIDES INCREASED
  6. SEROQUEL [Concomitant]
     Active Substance: QUETIAPINE FUMARATE
     Dosage: UNK
  7. ATIVAN [Concomitant]
     Active Substance: LORAZEPAM
     Indication: PANIC ATTACK
     Dosage: UNK
  8. PRISTIQ EXTENDED RELEASE [Suspect]
     Active Substance: DESVENLAFAXINE SUCCINATE
     Indication: DEPRESSION
     Dosage: 100 MG, TABLETS
  9. GEMFIBROZIL. [Concomitant]
     Active Substance: GEMFIBROZIL
     Dosage: UNK

REACTIONS (4)
  - Drug ineffective [Unknown]
  - Intentional product misuse [Unknown]
  - Crying [Unknown]
  - Psychiatric decompensation [Unknown]

NARRATIVE: CASE EVENT DATE: 20160101
